FAERS Safety Report 9247453 (Version 2)
Quarter: 2013Q2

REPORT INFORMATION
  Report Type: Spontaneous
  Country: US (occurrence: US)
  Receive Date: 20130423
  Receipt Date: 20130423
  Transmission Date: 20140414
  Serious: No
  Sender: FDA-Public Use
  Company Number: US-MYLANLABS-2012S1015010

PATIENT
  Age: 93 Year
  Sex: Female

DRUGS (23)
  1. LEVALBUTEROL INHALATION SOLUTION USP [Suspect]
     Indication: BRONCHOSPASM
     Route: 055
     Dates: start: 20120719
  2. LEVALBUTEROL INHALATION SOLUTION USP [Suspect]
     Indication: WHEEZING
     Route: 055
     Dates: start: 20120719
  3. COLACE [Concomitant]
  4. BABY ASPIRIN [Concomitant]
     Indication: ANTIPLATELET THERAPY
  5. VOLTAREN [Concomitant]
     Indication: ARTHRITIS
  6. METAMUCIL [Concomitant]
     Dosage: FIBER CAPSULE
  7. LEVOTHYROXINE [Concomitant]
     Indication: THYROID DISORDER
  8. ZOCOR [Concomitant]
     Indication: BLOOD CHOLESTEROL
  9. TESSALON [Concomitant]
     Dosage: COUGH AS NEEDED 1-2 PILLS EVERY 6 HOURS
  10. FERROUS SULFATE [Concomitant]
     Indication: BLOOD IRON
  11. MILK OF MAGNESIA [Concomitant]
     Dosage: LAXATIVE
  12. LASIX [Concomitant]
     Dosage: WATER PILL
  13. COZAAR [Concomitant]
  14. NASONEX [Concomitant]
     Dosage: TWO ^SQUIRTS^ PER NOSTRIL
     Route: 045
  15. RATADINE [Concomitant]
     Dosage: POST NASAL DRIP
  16. PEPCID [Concomitant]
  17. GLUCOSAMINA + CONDROITINA [Concomitant]
     Dosage: 2 TAB
  18. TYLENOL [Concomitant]
     Indication: PAIN IN EXTREMITY
     Dosage: EVERY 4-6 HOURS
  19. MICRO-K [Concomitant]
  20. OXYGEN [Concomitant]
     Dosage: 2 LITERS
  21. AMOXICILLIN + CLAVULANIC ACID [Concomitant]
     Dosage: 875MG/125MG
     Dates: start: 20120719, end: 20120726
  22. PREDNISONE [Concomitant]
     Dates: start: 20120719, end: 20120727
  23. ACETYLCYSTEINE [Concomitant]
     Dates: start: 20120722

REACTIONS (8)
  - Drug ineffective [Not Recovered/Not Resolved]
  - Wheezing [Not Recovered/Not Resolved]
  - Insomnia [Recovered/Resolved]
  - Malaise [Recovered/Resolved]
  - Tremor [Recovered/Resolved]
  - Wrong technique in drug usage process [Recovered/Resolved]
  - Tachycardia [Recovered/Resolved]
  - Feeling jittery [Not Recovered/Not Resolved]
